FAERS Safety Report 4673959-5 (Version None)
Quarter: 2005Q2

REPORT INFORMATION
  Report Type: 
  Country: None (occurrence: None)
  Receive Date: 20050524
  Receipt Date: 20050510
  Transmission Date: 20051028
  Serious: Yes (Hospitalization)
  Sender: FDA-Public Use
  Company Number: GBS050517363

PATIENT
  Age: 86 Year
  Sex: Female
  Weight: 70 kg

DRUGS (4)
  1. YENTREVE (DULOXETINE HYDROCHLORIDE) [Suspect]
     Indication: URINARY INCONTINENCE
     Dosage: 40 MG
     Dates: start: 20050428, end: 20050429
  2. BISOPROLOL FUMARATE [Concomitant]
  3. BENDROFLUAZIDE [Concomitant]
  4. NIFEDIPINE [Concomitant]

REACTIONS (4)
  - HEADACHE [None]
  - NAUSEA [None]
  - NECK PAIN [None]
  - SPEECH DISORDER [None]
